FAERS Safety Report 15385109 (Version 2)
Quarter: 2018Q4

REPORT INFORMATION
  Report Type: Spontaneous
  Country: US (occurrence: US)
  Receive Date: 20180914
  Receipt Date: 20181121
  Transmission Date: 20190204
  Serious: Yes (Other)
  Sender: FDA-Public Use
  Company Number: US-RECKITT BENCKISER HEALTHCARE INT LIMITED-RB-90685-2018

PATIENT

DRUGS (1)
  1. MUCINEX MAXIMUM STRENGTH [Suspect]
     Active Substance: GUAIFENESIN
     Indication: BRONCHIECTASIS
     Dosage: 1200 MILLIGRAM, BID
     Route: 065

REACTIONS (2)
  - Epistaxis [Recovered/Resolved]
  - Inappropriate schedule of product administration [Recovered/Resolved]
